FAERS Safety Report 5104475-4 (Version None)
Quarter: 2006Q3

REPORT INFORMATION
  Report Type: 
  Country: None (occurrence: None)
  Receive Date: 20060731
  Receipt Date: 20060516
  Transmission Date: 20061208
  Serious: Yes (Other)
  Sender: FDA-Public Use
  Company Number: US-JNJFOC-20050204994

PATIENT
  Age: 48 Year
  Sex: Female
  Weight: 102.0593 kg

DRUGS (21)
  1. RISPERDAL CONSTA [Suspect]
     Indication: PSYCHOTIC DISORDER
     Dosage: 25 MG, 1 IN 2 WEEK, INTRA-MUSCULAR; SEE IMAGE
     Route: 030
     Dates: start: 20040515, end: 20041001
  2. RISPERDAL CONSTA [Suspect]
     Indication: SCHIZOPHRENIA, PARANOID TYPE
     Dosage: 25 MG, 1 IN 2 WEEK, INTRA-MUSCULAR; SEE IMAGE
     Route: 030
     Dates: start: 20040515, end: 20041001
  3. RISPERDAL CONSTA [Suspect]
     Indication: PSYCHOTIC DISORDER
     Dosage: 25 MG, 1 IN 2 WEEK, INTRA-MUSCULAR; SEE IMAGE
     Route: 030
     Dates: start: 20040101
  4. RISPERDAL CONSTA [Suspect]
     Indication: SCHIZOPHRENIA, PARANOID TYPE
     Dosage: 25 MG, 1 IN 2 WEEK, INTRA-MUSCULAR; SEE IMAGE
     Route: 030
     Dates: start: 20040101
  5. RISPERDAL CONSTA [Suspect]
     Indication: PSYCHOTIC DISORDER
     Dosage: 25 MG, 1 IN 2 WEEK, INTRA-MUSCULAR; SEE IMAGE
     Route: 030
     Dates: start: 20050128
  6. RISPERDAL CONSTA [Suspect]
     Indication: SCHIZOPHRENIA, PARANOID TYPE
     Dosage: 25 MG, 1 IN 2 WEEK, INTRA-MUSCULAR; SEE IMAGE
     Route: 030
     Dates: start: 20050128
  7. DOPAMET (METHYLDOPA) [Concomitant]
  8. TRILEPTOL (OXCARBAZEPINE) [Concomitant]
  9. KEPPRA [Concomitant]
  10. LAMICTAL [Concomitant]
  11. LORTAB [Concomitant]
  12. TRAMADOL HCL [Concomitant]
  13. FOLTX (ALL OTHER THERAPEUTIC PRODUCTS) [Concomitant]
  14. LODINE [Concomitant]
  15. AXID [Concomitant]
  16. HUMIBID (GUAIFENESIN) [Concomitant]
  17. QVAR (BECLOMETASONE DIPROPIONATE) [Concomitant]
  18. NASACORT [Concomitant]
  19. ATIVAN [Concomitant]
  20. BENADRYL [Concomitant]
  21. CLARITIN [Concomitant]

REACTIONS (14)
  - AKATHISIA [None]
  - ASTHENIA [None]
  - ASTHMA [None]
  - CONVULSION [None]
  - DEPRESSION [None]
  - DIPLOPIA [None]
  - DYSPNOEA [None]
  - FIBROMYALGIA [None]
  - GASTROOESOPHAGEAL REFLUX DISEASE [None]
  - NAUSEA [None]
  - SLEEP APNOEA SYNDROME [None]
  - TREMOR [None]
  - VOMITING [None]
  - WEIGHT INCREASED [None]
